FAERS Safety Report 18879127 (Version 1)
Quarter: 2021Q1

REPORT INFORMATION
  Report Type: Spontaneous
  Country: US (occurrence: US)
  Receive Date: 20210211
  Receipt Date: 20210211
  Transmission Date: 20210420
  Serious: No
  Sender: FDA-Public Use
  Company Number: None

PATIENT
  Age: 83 Year
  Sex: Female
  Weight: 73.48 kg

DRUGS (2)
  1. PACLITAXEL. [Concomitant]
     Active Substance: PACLITAXEL
  2. KEYTRUDA [Suspect]
     Active Substance: PEMBROLIZUMAB
     Indication: BLADDER CANCER
     Dosage: ?          OTHER FREQUENCY:ONCE EVERY 3 WEEK;?
     Route: 042
     Dates: start: 20200824, end: 20210210

REACTIONS (1)
  - Disease progression [None]

NARRATIVE: CASE EVENT DATE: 20210210
